FAERS Safety Report 5976486-8 (Version None)
Quarter: 2008Q4

REPORT INFORMATION
  Report Type: 
  Country: None (occurrence: None)
  Receive Date: 20081125
  Receipt Date: 20081108
  Transmission Date: 20090506
  Serious: Yes (Hospitalization)
  Sender: FDA-Public Use
  Company Number: CHPA2008US19234

PATIENT
  Age: 7 Year
  Sex: Male
  Weight: 63.5 kg

DRUGS (1)
  1. TRIAMINIC NASAL + SINUS CONGESTION (NCH) (XYLOMETAZOLINE HYDROCHLORIDE [Suspect]
     Dosage: 1 DF, ONCE/SINGLE, NASAL
     Route: 045
     Dates: start: 20081106, end: 20081106

REACTIONS (2)
  - CROUP INFECTIOUS [None]
  - UPPER RESPIRATORY TRACT INFLAMMATION [None]
